FAERS Safety Report 7472700-0 (Version None)
Quarter: 2011Q2

REPORT INFORMATION
  Report Type: 
  Country: None (occurrence: None)
  Receive Date: 20110502
  Receipt Date: 20110425
  Transmission Date: 20111010
  Serious: Yes (Death, Hospitalization, Other)
  Sender: FDA-Public Use
  Company Number: 2011SP000433

PATIENT
  Age: 62 Year
  Sex: Male
  Weight: 101 kg

DRUGS (27)
  1. TAMSULOSIN HCL [Concomitant]
  2. FUROSEMIDE [Concomitant]
  3. MS CONTIN [Concomitant]
  4. DULCOLAX [Concomitant]
  5. LOSARTAN POTASSIUM [Concomitant]
  6. ASPIRIN [Concomitant]
  7. INSULIN HUMAN INJECTION, ISOPHANE [Concomitant]
  8. LEUPROLIDE ACETATE [Concomitant]
  9. LEKOVIT [Concomitant]
  10. MEGESTROL ACETATE [Concomitant]
  11. GLIPIZIDE [Concomitant]
  12. CORICIDIN [Concomitant]
  13. MEGESTROL ACETATE [Concomitant]
  14. SENNA ALEXANDRINA [Concomitant]
  15. IBUPROFEN [Concomitant]
  16. MS CONTIN [Concomitant]
  17. ABT-888 [Suspect]
     Indication: PROSTATE CANCER METASTATIC
     Dosage: 40 MG;BID;PO; 80 MG;BID;PO
     Route: 048
     Dates: start: 20100810, end: 20101108
  18. COLECALCIFEROL [Concomitant]
  19. INSULIN HUMAN [Concomitant]
  20. TEMOZOLOMIDE [Suspect]
     Indication: PROSTATE CANCER METASTATIC
     Dosage: PO
     Route: 048
     Dates: start: 20100810
  21. ATENOLOL [Concomitant]
  22. LACTULOSE [Concomitant]
  23. ZOLEDRONIC ACID [Concomitant]
  24. TYLOX [Concomitant]
  25. COLACE [Concomitant]
  26. IBUPROFEN [Concomitant]
  27. CENTRUM SILVER [Concomitant]

REACTIONS (20)
  - HEPATIC FAILURE [None]
  - THROMBOCYTOPENIA [None]
  - METASTASES TO LUNG [None]
  - ANAEMIA [None]
  - HYPOTENSION [None]
  - RENAL FAILURE [None]
  - PRODUCTIVE COUGH [None]
  - INFECTION [None]
  - DEHYDRATION [None]
  - METASTASES TO LIVER [None]
  - EPISTAXIS [None]
  - HAEMOPTYSIS [None]
  - HEPATORENAL SYNDROME [None]
  - PYREXIA [None]
  - OXYGEN SATURATION DECREASED [None]
  - PAIN IN JAW [None]
  - DYSPNOEA [None]
  - ATELECTASIS [None]
  - BACK PAIN [None]
  - COLD SWEAT [None]
